FAERS Safety Report 17258277 (Version 6)
Quarter: 2022Q3

REPORT INFORMATION
  Report Type: Spontaneous
  Country: CA (occurrence: CA)
  Receive Date: 20200110
  Receipt Date: 20220721
  Transmission Date: 20221026
  Serious: Yes (Other)
  Sender: FDA-Public Use
  Company Number: CA-PFIZER INC-2019059598

PATIENT
  Age: 81 Year
  Sex: Female

DRUGS (11)
  1. XELJANZ [Suspect]
     Active Substance: TOFACITINIB CITRATE
     Indication: Rheumatoid arthritis
     Dosage: 5 MG, 2X/DAY
     Route: 048
     Dates: start: 20190120
  2. FOLIC ACID [Concomitant]
     Active Substance: FOLIC ACID
     Dosage: UNK
  3. FOLIC ACID [Concomitant]
     Active Substance: FOLIC ACID
     Dosage: 1 DF DOSAGE NOT AVAILABLE
     Route: 065
  4. HYDROXYCHLOROQUINE [Concomitant]
     Active Substance: HYDROXYCHLOROQUINE
     Dosage: UNK
  5. HYDROXYCHLOROQUINE [Concomitant]
     Active Substance: HYDROXYCHLOROQUINE
     Dosage: 1 DF DOSAGE NOT AVAILABLE
     Route: 065
  6. METHOTREXATE [Concomitant]
     Active Substance: METHOTREXATE
     Dosage: 22.5 MG
     Dates: start: 2015, end: 2019
  7. METHOTREXATE [Concomitant]
     Active Substance: METHOTREXATE
     Dosage: UNKNOWN LOWERED DOSE
     Dates: start: 2019
  8. METHOTREXATE [Concomitant]
     Active Substance: METHOTREXATE
     Dosage: 22500 UG (STOP DATE: 2018/2019)
     Route: 065
     Dates: start: 2018
  9. METHOTREXATE [Concomitant]
     Active Substance: METHOTREXATE
     Dosage: 1 DF (START DATE: 2018/2019)
     Route: 065
     Dates: start: 2018
  10. PREDNISONE [Concomitant]
     Active Substance: PREDNISONE
     Dosage: UNK
  11. PREDNISONE [Concomitant]
     Active Substance: PREDNISONE
     Dosage: 1 DF DOSAGE NOT AVAILABLE
     Route: 065

REACTIONS (9)
  - Intestinal obstruction [Recovered/Resolved]
  - Weight increased [Unknown]
  - Alopecia [Recovering/Resolving]
  - Anxiety [Unknown]
  - Back pain [Unknown]
  - Dyspnoea [Unknown]
  - Onychoclasis [Recovering/Resolving]
  - Anaemia [Recovered/Resolved]
  - Ageusia [Not Recovered/Not Resolved]

NARRATIVE: CASE EVENT DATE: 20190701
